FAERS Safety Report 4824669-2 (Version None)
Quarter: 2005Q4

REPORT INFORMATION
  Report Type: 
  Country: None (occurrence: None)
  Receive Date: 20051108
  Receipt Date: 20051026
  Transmission Date: 20060501
  Serious: Yes (Hospitalization, Disabling, Other)
  Sender: FDA-Public Use
  Company Number: 2005149045

PATIENT
  Age: 39 Year
  Sex: Female
  Weight: 36 kg

DRUGS (2)
  1. SULFASALAZINE [Suspect]
     Indication: RHEUMATOID ARTHRITIS
     Dosage: UNKNOWN
     Route: 065
     Dates: start: 20050501
  2. METOBLASTINE (METHOTREXATE) [Suspect]
     Indication: RHEUMATOID ARTHRITIS
     Dosage: UNKNOWN (2.5 MG)
     Route: 065
     Dates: start: 20050501

REACTIONS (10)
  - ACNE [None]
  - ACTIVITIES OF DAILY LIVING IMPAIRED [None]
  - ASTHENIA [None]
  - DYSSTASIA [None]
  - HEPATIC FUNCTION ABNORMAL [None]
  - NAUSEA [None]
  - POLYMYOSITIS [None]
  - RAYNAUD'S PHENOMENON [None]
  - SCLERODERMA [None]
  - WEIGHT DECREASED [None]
